FAERS Safety Report 22166171 (Version 1)
Quarter: 2023Q2

REPORT INFORMATION
  Report Type: Spontaneous
  Country: US (occurrence: US)
  Receive Date: 20230403
  Receipt Date: 20230403
  Transmission Date: 20230721
  Serious: No
  Sender: FDA-Public Use
  Company Number: US-ZENPEP LLC-2023AIMT00173

PATIENT

DRUGS (18)
  1. ZENPEP [Suspect]
     Active Substance: PANCRELIPASE AMYLASE\PANCRELIPASE LIPASE\PANCRELIPASE PROTEASE
     Indication: Abdominal distension
     Dosage: 40000 USP UNITS, 2 PILLS WITH EACH MEAL OR SNACK
     Route: 048
     Dates: start: 20230222
  2. ZENPEP [Suspect]
     Active Substance: PANCRELIPASE AMYLASE\PANCRELIPASE LIPASE\PANCRELIPASE PROTEASE
     Dosage: 40000 USP UNITS, 2 PILLS WITH EACH MEAL OR SNACK, LAST DOSE PRIOR EVENT
     Route: 048
     Dates: start: 202302, end: 202302
  3. WARFARIN [Concomitant]
     Active Substance: WARFARIN
     Indication: Heart valve replacement
     Dosage: 5 MG, FOUR NIGHTS A WEEK
  4. WARFARIN [Concomitant]
     Active Substance: WARFARIN
     Dosage: 5 MG, THREE NIGHTS A WEEK
  5. SYNTHROID [Concomitant]
     Active Substance: LEVOTHYROXINE SODIUM
     Indication: Hypothyroidism
     Dosage: 150 MCG, MONDAY-FRIDAY
     Dates: start: 1982
  6. SYNTHROID [Concomitant]
     Active Substance: LEVOTHYROXINE SODIUM
     Dosage: 75 MCG, SATURDAY AND SUNDAY
     Dates: start: 1982
  7. METOPROLOL [Concomitant]
     Active Substance: METOPROLOL
     Indication: Cardiac operation
     Dosage: 100 MG, DAILY
  8. HYDROCHLOROTHIAZIDE\TRIAMTERENE [Concomitant]
     Active Substance: HYDROCHLOROTHIAZIDE\TRIAMTERENE
     Indication: Cardiac operation
     Dosage: 37.5 MG/ 25MG, 1X/DAY
  9. GABAPENTIN [Concomitant]
     Active Substance: GABAPENTIN
     Indication: Neuropathy peripheral
     Dosage: 300 MG, 2X/DAY AT NIGHT
  10. ROSUVASTATIN [Concomitant]
     Active Substance: ROSUVASTATIN
     Indication: Blood cholesterol increased
     Dosage: 30 MG, 1X/DAY EVRY NIGHT
  11. DICYCLOMINE [Concomitant]
     Active Substance: DICYCLOMINE HYDROCHLORIDE
     Indication: Abdominal rigidity
     Dosage: 10 MG, 1X/DAY EVERY EVENING
  12. FAMOTIDINE [Concomitant]
     Active Substance: FAMOTIDINE
     Indication: Reflux gastritis
     Dosage: 30 MG, 2X/DAY
  13. VITAMINS [Concomitant]
     Active Substance: VITAMINS
     Indication: Product used for unknown indication
     Dosage: UNK, DAILY
  14. LINOLEIC ACID, CONJUGATED [Concomitant]
     Active Substance: LINOLEIC ACID, CONJUGATED
     Indication: Dyspepsia
     Dosage: 1250 MG, 2X/DAY
  15. ASPIRIN [Concomitant]
     Active Substance: ASPIRIN
     Indication: Cardiac operation
     Dosage: 81 MG, 1X/DAY EVERY NIGHT
  16. LOPERAMIDE [Concomitant]
     Active Substance: LOPERAMIDE
     Indication: Diarrhoea
     Dosage: 2 MG, 1X/DAY
  17. FOLIC ACID [Concomitant]
     Active Substance: FOLIC ACID
     Indication: Anaemia
     Dosage: 1000MC, 1X/DAY
  18. MAGNESIUM [Concomitant]
     Active Substance: MAGNESIUM
     Indication: Muscle spasms
     Dosage: 143 MG, 2X/DAY EACH NIGHT

REACTIONS (2)
  - Prothrombin time ratio increased [Recovering/Resolving]
  - Off label use [Recovered/Resolved]

NARRATIVE: CASE EVENT DATE: 20230222
